FAERS Safety Report 7937557-X (Version None)
Quarter: 2011Q4

REPORT INFORMATION
  Report Type: 
  Country: None (occurrence: None)
  Receive Date: 20111123
  Receipt Date: 20111117
  Transmission Date: 20120403
  Serious: Yes (Other)
  Sender: FDA-Public Use
  Company Number: US-ABBOTT-11P-163-0876691-00

PATIENT
  Age: 50 Year
  Sex: Female

DRUGS (12)
  1. CELEXA [Concomitant]
     Indication: DEPRESSION
  2. REQUIP [Concomitant]
     Indication: RESTLESS LEGS SYNDROME
  3. VITAMIN D [Concomitant]
     Indication: VITAMIN SUPPLEMENTATION
  4. BIOTIN [Concomitant]
     Indication: PRODUCT USED FOR UNKNOWN INDICATION
  5. JANUVIA [Concomitant]
     Indication: DIABETES MELLITUS
  6. LOTENSIN [Concomitant]
     Indication: DIABETIC NEPHROPATHY
  7. ALBUTEROL [Concomitant]
     Indication: ASTHMA
  8. CALCIUM [Concomitant]
     Indication: MINERAL SUPPLEMENTATION
  9. MIRALAX [Concomitant]
     Indication: CONSTIPATION
     Dosage: 2 TO 3 TIMES WEEKLY
  10. HUMIRA [Suspect]
     Indication: PSORIATIC ARTHROPATHY
  11. TRAZODONE HCL [Concomitant]
     Indication: INSOMNIA
     Dosage: AT BEDTIME
  12. VITAMIN B-12 [Concomitant]
     Indication: VITAMIN SUPPLEMENTATION

REACTIONS (4)
  - ULCER [None]
  - FEMUR FRACTURE [None]
  - FOOT FRACTURE [None]
  - CARPAL TUNNEL SYNDROME [None]
